FAERS Safety Report 9914754 (Version 1)
Quarter: 2014Q1

REPORT INFORMATION
  Report Type: Spontaneous
  Country: US (occurrence: None)
  Receive Date: 20140220
  Receipt Date: 20140220
  Transmission Date: 20141002
  Serious: Yes (Other)
  Sender: FDA-Public Use
  Company Number: US-145514

PATIENT
  Age: 7 Year
  Sex: Male
  Weight: 39.6 kg

DRUGS (1)
  1. WINRHO SDF LIQUID [Suspect]
     Indication: IMMUNE THROMBOCYTOPENIC PURPURA
     Dates: start: 20140114, end: 20140114

REACTIONS (15)
  - Dizziness [None]
  - Nausea [None]
  - Syncope [None]
  - Hypotension [None]
  - Heart rate increased [None]
  - Chills [None]
  - Feeling cold [None]
  - Headache [None]
  - Slow response to stimuli [None]
  - Somnolence [None]
  - Crying [None]
  - Neck pain [None]
  - Blood bilirubin increased [None]
  - Platelet count decreased [None]
  - Haemoglobin decreased [None]
